FAERS Safety Report 16597651 (Version 1)
Quarter: 2019Q3

REPORT INFORMATION
  Report Type: Spontaneous
  Country: US (occurrence: US)
  Receive Date: 20190719
  Receipt Date: 20190719
  Transmission Date: 20191004
  Serious: No
  Sender: FDA-Public Use
  Company Number: US-GALDERMA-US19031818

PATIENT
  Age: 22 Year
  Sex: Male

DRUGS (4)
  1. ALOE VERA GEL 93% SKIN FOOD [Concomitant]
     Indication: DRY SKIN PROPHYLAXIS
     Route: 061
  2. PROTEIN POWDER [Concomitant]
     Indication: PRODUCT USED FOR UNKNOWN INDICATION
  3. DIFFERIN DAILY DEEP CLEANSER WITH BPO [Suspect]
     Active Substance: BENZOYL PEROXIDE
     Indication: ACNE
     Route: 061
     Dates: start: 20190326
  4. DIFFERIN GEL [Suspect]
     Active Substance: ADAPALENE
     Indication: ACNE
     Dosage: 0.1%
     Route: 061
     Dates: start: 20190326

REACTIONS (1)
  - Acne cystic [Not Recovered/Not Resolved]

NARRATIVE: CASE EVENT DATE: 201905
